FAERS Safety Report 4891573-3 (Version None)
Quarter: 2006Q1

REPORT INFORMATION
  Report Type: 
  Country: None (occurrence: None)
  Receive Date: 20060125
  Receipt Date: 20060118
  Transmission Date: 20060701
  Serious: Yes (Other)
  Sender: FDA-Public Use
  Company Number: US-MERCK-0601USA02122

PATIENT
  Age: 68 Year
  Sex: Female
  Weight: 71 kg

DRUGS (1)
  1. FOSAMAX [Suspect]
     Indication: OSTEOPOROSIS
     Route: 048
     Dates: start: 20040101, end: 20050101

REACTIONS (3)
  - ACQUIRED OESOPHAGEAL WEB [None]
  - ENDOSCOPY GASTROINTESTINAL ABNORMAL [None]
  - ULCER [None]
